FAERS Safety Report 4349042-5 (Version None)
Quarter: 2004Q2

REPORT INFORMATION
  Report Type: 
  Country: None (occurrence: None)
  Receive Date: 20040427
  Receipt Date: 20040427
  Transmission Date: 20050107
  Serious: Yes (Life-Threatening)
  Sender: FDA-Public Use
  Company Number: None

PATIENT
  Age: 16 Year
  Sex: Male

DRUGS (1)
  1. LAMICTAL [Suspect]
     Indication: CONVULSION
     Dosage: 100 MG 2 TIMES DAY
     Dates: start: 19981231, end: 19990119

REACTIONS (3)
  - ANGER [None]
  - DEPRESSION [None]
  - VOMITING [None]
